FAERS Safety Report 8531706-0 (Version None)
Quarter: 2012Q3

REPORT INFORMATION
  Report Type: 
  Country: None (occurrence: None)
  Receive Date: 20120723
  Receipt Date: 20120716
  Transmission Date: 20120928
  Serious: Yes (Hospitalization)
  Sender: FDA-Public Use
  Company Number: US-TEVA-348977USA

PATIENT
  Age: 63 Year
  Sex: Male

DRUGS (4)
  1. OXALIPLATIN [Suspect]
     Indication: OESOPHAGEAL CARCINOMA
     Dosage: 85 MG/M2 ON DAYS 1, 15, 29
     Route: 065
     Dates: end: 20070201
  2. DAUNORUBICIN HCL [Suspect]
     Indication: ACUTE MYELOID LEUKAEMIA
     Route: 065
  3. CAPECITABINE [Concomitant]
     Indication: OESOPHAGEAL CARCINOMA
     Dosage: 1250 MG/M2 TWICE DAILY MON-FRI ON DAYS OF RADIATION
     Route: 048
     Dates: end: 20070301
  4. CYTARABINE [Suspect]
     Indication: ACUTE MYELOID LEUKAEMIA
     Route: 065

REACTIONS (7)
  - BONE PAIN [None]
  - FATIGUE [None]
  - ACUTE MYELOID LEUKAEMIA [None]
  - SEPSIS [None]
  - ASTHENIA [None]
  - DIARRHOEA [None]
  - RENAL FAILURE ACUTE [None]
